FAERS Safety Report 25870362 (Version 1)
Quarter: 2025Q4

REPORT INFORMATION
  Report Type: Spontaneous
  Country: US (occurrence: US)
  Receive Date: 20251001
  Receipt Date: 20251001
  Transmission Date: 20260117
  Serious: No
  Sender: GLAXOSMITHKLINE
  Company Number: US-GSK-US2025AMR112650

PATIENT
  Sex: Female

DRUGS (1)
  1. BENLYSTA [Suspect]
     Active Substance: BELIMUMAB
     Indication: Systemic lupus erythematosus
     Dosage: 200 MG, WE
     Route: 065

REACTIONS (6)
  - White blood cell count decreased [Unknown]
  - Red blood cell count decreased [Unknown]
  - Injection site urticaria [Unknown]
  - COVID-19 [Unknown]
  - Muscle tightness [Unknown]
  - Arthralgia [Unknown]
